FAERS Safety Report 19569016 (Version 2)
Quarter: 2022Q4

REPORT INFORMATION
  Report Type: Spontaneous
  Country: MX (occurrence: MX)
  Receive Date: 20210714
  Receipt Date: 20221102
  Transmission Date: 20230113
  Serious: Yes (Hospitalization, Other)
  Sender: FDA-Public Use
  Company Number: MX-LUNDBECK-DKLU3035618

PATIENT
  Age: 9 Year
  Sex: Male
  Weight: 28 kg

DRUGS (5)
  1. CLOBAZAM [Suspect]
     Active Substance: CLOBAZAM
     Indication: Infantile spasms
     Route: 048
     Dates: start: 2014
  2. CLOBAZAM [Suspect]
     Active Substance: CLOBAZAM
     Indication: Meningitis
     Route: 048
     Dates: start: 2016
  3. LACOSAMIDE [Concomitant]
     Active Substance: LACOSAMIDE
     Indication: Seizure
     Route: 048
  4. LEVETIRACETAM [Concomitant]
     Active Substance: LEVETIRACETAM
     Indication: Seizure
     Route: 048
  5. AMOXILAN [Concomitant]
     Indication: Seizure
     Route: 048

REACTIONS (6)
  - Seizure [Unknown]
  - Somnolence [Not Recovered/Not Resolved]
  - Product availability issue [Unknown]
  - Incorrect dose administered [Unknown]
  - Off label use [Unknown]
  - Off label use [Unknown]

NARRATIVE: CASE EVENT DATE: 20140101
